FAERS Safety Report 9388881 (Version 5)
Quarter: 2013Q4

REPORT INFORMATION
  Report Type: Report from Study
  Country: DE (occurrence: DE)
  Receive Date: 20130708
  Receipt Date: 20131017
  Transmission Date: 20140711
  Serious: Yes (Hospitalization)
  Sender: FDA-Public Use
  Company Number: DE-BRISTOL-MYERS SQUIBB COMPANY-19071828

PATIENT
  Age: 59 Year
  Sex: Male

DRUGS (7)
  1. CETUXIMAB [Suspect]
     Indication: OESOPHAGEAL CARCINOMA
     Route: 042
     Dates: start: 20130329
  2. CISPLATIN FOR INJ [Suspect]
     Indication: OESOPHAGEAL CARCINOMA
     Dosage: 29MAR-16MAY13?16MAY13-ONG
     Route: 042
     Dates: start: 20130329
  3. DOCETAXEL [Suspect]
     Indication: OESOPHAGEAL CARCINOMA
     Dosage: 29MAR-6MAY13-152MG?16MAY13-ONG-40MG
     Route: 042
     Dates: start: 20130329
  4. POTASSIUM [Concomitant]
     Indication: DIARRHOEA
     Route: 042
  5. ALLOPURINOL [Concomitant]
     Indication: GOUT
  6. PANTOPRAZOLE [Concomitant]
  7. DOXYCYCLINE [Concomitant]

REACTIONS (1)
  - Syncope [Recovered/Resolved]
